FAERS Safety Report 6677994-7 (Version None)
Quarter: 2010Q2

REPORT INFORMATION
  Report Type: 
  Country: None (occurrence: None)
  Receive Date: 20100412
  Receipt Date: 20100323
  Transmission Date: 20101027
  Serious: Yes (Death, Hospitalization, Other)
  Sender: FDA-Public Use
  Company Number: JP-BAXTER-2010BH008111

PATIENT
  Sex: Female

DRUGS (2)
  1. EXTRANEAL [Suspect]
     Indication: RENAL FAILURE CHRONIC
     Route: 033
     Dates: start: 20040701, end: 20100103
  2. DIANEAL 137 W/ DEXTROSE 2.5% IN PLASTIC CONTAINER [Suspect]
     Indication: RENAL FAILURE CHRONIC
     Route: 033
     Dates: start: 20040701, end: 20100103

REACTIONS (5)
  - DISSEMINATED INTRAVASCULAR COAGULATION [None]
  - GRANULOCYTOPENIA [None]
  - IMMUNE SYSTEM DISORDER [None]
  - PERITONITIS [None]
  - SEPTIC SHOCK [None]
